FAERS Safety Report 7547229-1 (Version None)
Quarter: 2011Q2

REPORT INFORMATION
  Report Type: 
  Country: None (occurrence: None)
  Receive Date: 20110614
  Receipt Date: 20110602
  Transmission Date: 20111010
  Serious: Yes (Other)
  Sender: FDA-Public Use
  Company Number: US-BAYER-2011-048288

PATIENT
  Sex: Female

DRUGS (1)
  1. ONE-A-DAY WOMEN'S 50 + ADVANTAGE [Suspect]
     Dosage: 1 DF, ONCE
     Route: 048
     Dates: start: 20110530, end: 20110530

REACTIONS (2)
  - FOREIGN BODY [None]
  - CHOKING [None]
